FAERS Safety Report 9957453 (Version 1)
Quarter: 2014Q1

REPORT INFORMATION
  Report Type: Report from Study
  Country: US (occurrence: US)
  Receive Date: 20140304
  Receipt Date: 20140304
  Transmission Date: 20141002
  Serious: No
  Sender: FDA-Public Use
  Company Number: US-ABBVIE-13P-163-1098507-00

PATIENT
  Age: 55 Year
  Sex: Female

DRUGS (22)
  1. HUMIRA [Suspect]
     Indication: CROHN^S DISEASE
  2. CYMBALTA [Concomitant]
     Indication: PAIN
  3. MAXIDENE [Concomitant]
     Indication: HYPERTENSION
     Dosage: 37.5/25MG; 2 TABS DAILY
  4. CATAPRESS [Concomitant]
     Indication: HYPERHIDROSIS
  5. TRICOR [Concomitant]
     Indication: BLOOD CHOLESTEROL INCREASED
     Dosage: DAILY
  6. LOMOTIL [Concomitant]
     Indication: DIARRHOEA
  7. BENTYL [Concomitant]
     Indication: ABDOMINAL PAIN
  8. KLONOPIN [Concomitant]
     Indication: ANXIETY
     Dosage: 1 TAB TWICE DAILY, 1-2 TABS AT BEDTIME
  9. METHADONE [Concomitant]
     Indication: PAIN
     Dosage: 4 TABS DAILY
  10. ZOFRAN [Concomitant]
     Indication: NAUSEA
     Dosage: 1 TAB EVERY 4-6 HOURS AS NEEDED
  11. PHENERGAN [Concomitant]
     Indication: NAUSEA
     Dosage: 1 TAB EVERY 6 HOURS AS NEEDED
  12. ZANAFLEX [Concomitant]
     Indication: MUSCLE RELAXANT THERAPY
  13. FIORINAL [Concomitant]
     Indication: MIGRAINE
     Dosage: 50-325-40MG, 1-2 TABS EVERY 4-6 HOURS AS NEEDED
  14. LASIX [Concomitant]
     Indication: SWELLING
  15. ABILIFY [Concomitant]
     Indication: DEPRESSION
     Dosage: 2MG DAILY
  16. VITAMIN D3 [Concomitant]
     Indication: VITAMIN D DECREASED
     Dosage: 5000 UNITS DAILY
  17. BACTRIM DS [Concomitant]
     Indication: URINARY TRACT INFECTION
     Dosage: AS NEEDED
  18. POTASSIUM [Concomitant]
     Indication: HYPOKALAEMIA
     Dosage: 1-2 TABS DAILY
  19. NEXIUM [Concomitant]
     Indication: GASTROOESOPHAGEAL REFLUX DISEASE
  20. ZANTAC [Concomitant]
     Indication: GASTROOESOPHAGEAL REFLUX DISEASE
     Dosage: AT BEDTIME
  21. SYMBICORT [Concomitant]
     Indication: BRONCHITIS
     Dosage: 2 PUFFS TWICE DAILY AS NEEDED
  22. VENTOLIN [Concomitant]
     Indication: BRONCHITIS

REACTIONS (3)
  - Frequent bowel movements [Not Recovered/Not Resolved]
  - Bronchitis [Not Recovered/Not Resolved]
  - Abdominal pain [Not Recovered/Not Resolved]
